FAERS Safety Report 14435234 (Version 2)
Quarter: 2018Q1

REPORT INFORMATION
  Report Type: Spontaneous
  Country: AT (occurrence: AT)
  Receive Date: 20180125
  Receipt Date: 20180215
  Transmission Date: 20180509
  Serious: Yes (Life-Threatening, Hospitalization)
  Sender: FDA-Public Use
  Company Number: AT-CIPLA LTD.-2018AT01514

PATIENT

DRUGS (1)
  1. LAMOTRIGINE. [Suspect]
     Active Substance: LAMOTRIGINE
     Indication: EPILEPSY
     Dosage: 200 MG, DAILY (2X100 MG P.O.)
     Route: 048
     Dates: start: 201710, end: 201711

REACTIONS (7)
  - Interstitial lung disease [Recovering/Resolving]
  - Drug reaction with eosinophilia and systemic symptoms [Recovering/Resolving]
  - Enterocolitis haemorrhagic [Recovering/Resolving]
  - Sepsis [Recovering/Resolving]
  - Autoantibody positive [Recovering/Resolving]
  - Thrombocytopenia [Recovering/Resolving]
  - Haemorrhage [Recovering/Resolving]

NARRATIVE: CASE EVENT DATE: 201711
